FAERS Safety Report 25673849 (Version 1)
Quarter: 2025Q3

REPORT INFORMATION
  Report Type: Spontaneous
  Country: US (occurrence: US)
  Receive Date: 20250813
  Receipt Date: 20250813
  Transmission Date: 20251021
  Serious: No
  Sender: SPECGX
  Company Number: US-SPECGX-T202402269

PATIENT
  Age: 64 Year
  Sex: Female

DRUGS (3)
  1. OXYCODONE [Suspect]
     Active Substance: OXYCODONE
     Indication: Pain
     Dosage: 30 MILLIGRAM, QID
     Route: 065
  2. OXYCODONE [Suspect]
     Active Substance: OXYCODONE
     Indication: Pain
     Dosage: 30 MILLIGRAM, QID
     Route: 065
     Dates: start: 20241104
  3. IBUPROFEN [Concomitant]
     Active Substance: IBUPROFEN
     Indication: Pain
     Route: 065

REACTIONS (9)
  - Illness [Unknown]
  - Dysstasia [Unknown]
  - Taste disorder [Unknown]
  - Drug withdrawal syndrome [Unknown]
  - Intentional product use issue [Unknown]
  - Product taste abnormal [Unknown]
  - Product quality issue [Unknown]
  - Product physical issue [Unknown]
  - Drug ineffective [Unknown]

NARRATIVE: CASE EVENT DATE: 20241101
